FAERS Safety Report 7347300-3 (Version None)
Quarter: 2011Q1

REPORT INFORMATION
  Report Type: 
  Country: None (occurrence: None)
  Receive Date: 20110311
  Receipt Date: 20110301
  Transmission Date: 20110831
  Serious: Yes (Hospitalization, Other)
  Sender: FDA-Public Use
  Company Number: JP-ROCHE-604420

PATIENT
  Sex: Female
  Weight: 54 kg

DRUGS (21)
  1. THYRADIN S [Concomitant]
     Dosage: FORM: ORAL FORMULATION (NOT OTHERWISE SPECIFIED)
     Route: 048
     Dates: start: 20091216
  2. ASPARA-CA [Concomitant]
     Route: 048
     Dates: start: 20091216
  3. PREDNISOLONE [Suspect]
     Indication: RHEUMATOID ARTHRITIS
     Dosage: FORM: ORAL FORMULATION (NOT OTHERWISE SPECIFIED).
     Route: 048
  4. TOCILIZUMAB [Suspect]
     Route: 041
     Dates: start: 20090217, end: 20090217
  5. TOCILIZUMAB [Suspect]
     Route: 041
     Dates: start: 20090512, end: 20090512
  6. TOCILIZUMAB [Suspect]
     Route: 041
     Dates: start: 20090707, end: 20090707
  7. MOBIC [Suspect]
     Indication: RHEUMATOID ARTHRITIS
     Route: 048
     Dates: end: 20091216
  8. TOCILIZUMAB [Suspect]
     Route: 041
     Dates: start: 20090114, end: 20090114
  9. TOCILIZUMAB [Suspect]
     Route: 041
     Dates: start: 20090929, end: 20090929
  10. PREDNISOLONE [Suspect]
     Route: 048
  11. BASEN [Concomitant]
     Route: 048
     Dates: start: 20091216
  12. HERBESSER R [Concomitant]
     Route: 048
     Dates: start: 20091216
  13. TOCILIZUMAB [Suspect]
     Route: 041
     Dates: start: 20090609, end: 20090609
  14. ALFAROL [Concomitant]
     Route: 048
     Dates: start: 20091216
  15. TOCILIZUMAB [Suspect]
     Route: 041
     Dates: start: 20090318, end: 20090318
  16. GASTER [Concomitant]
     Dosage: FORM: ORAL FORMULATION (NOT OTHERWISE SPECIFIED)
     Route: 048
     Dates: end: 20091216
  17. BONALON [Concomitant]
     Route: 048
     Dates: start: 20090618, end: 20091216
  18. TOCILIZUMAB [Suspect]
     Indication: RHEUMATOID ARTHRITIS
     Route: 041
     Dates: start: 20081217, end: 20081217
  19. TOCILIZUMAB [Suspect]
     Route: 041
     Dates: start: 20090414, end: 20090414
  20. TOCILIZUMAB [Suspect]
     Route: 041
     Dates: start: 20090804, end: 20090804
  21. TOCILIZUMAB [Suspect]
     Route: 041
     Dates: start: 20090901, end: 20090901

REACTIONS (2)
  - ANAEMIA [None]
  - MELAENA [None]
